FAERS Safety Report 4552053-8 (Version None)
Quarter: 2005Q1

REPORT INFORMATION
  Report Type: 
  Country: None (occurrence: None)
  Receive Date: 20050112
  Receipt Date: 20041228
  Transmission Date: 20050727
  Serious: Yes (Other)
  Sender: FDA-Public Use
  Company Number: USA041287046

PATIENT
  Age: 76 Year
  Sex: Female

DRUGS (1)
  1. EVISTA [Suspect]

REACTIONS (4)
  - BACK INJURY [None]
  - DISCOMFORT [None]
  - FALL [None]
  - ROTATOR CUFF REPAIR [None]
